FAERS Safety Report 8385303 (Version 2)
Quarter: 2014Q2

REPORT INFORMATION
  Report Type: Not Available
  Country: FR (occurrence: FR)
  Receive Date: 20110923
  Receipt Date: 20140523
  Transmission Date: 20141212
  Serious: Yes (Hospitalization)
  Sender: FDA-Public Use
  Company Number: FR-RB-032220-11

PATIENT
  Age: 33 Year
  Sex: Male
  Weight: 70 kg

DRUGS (7)
  1. SUBUTEX [Suspect]
     Route: 060
     Dates: end: 20110815
  2. SUBUTEX [Suspect]
     Indication: DRUG DEPENDENCE
     Route: 060
     Dates: start: 20110819
  3. TEMESTA [Suspect]
     Indication: PRODUCT USED FOR UNKNOWN INDICATION
     Route: 048
     Dates: start: 20110214, end: 20110814
  4. TRANXENE [Concomitant]
     Indication: DRUG DEPENDENCE
     Dosage: DOSING DETAILS UNKNOWN
     Route: 065
     Dates: start: 201108
  5. RISPERDAL [Concomitant]
     Indication: BIPOLAR I DISORDER
     Dosage: DOSING DETAILS UNKNOWN
     Route: 065
  6. RISPERDAL [Concomitant]
     Route: 065
     Dates: start: 20110819
  7. DEROXAT [Concomitant]
     Indication: BIPOLAR I DISORDER
     Dosage: DOSING DETAILS UNKNOWN
     Route: 065

REACTIONS (5)
  - Malaise [Recovered/Resolved]
  - Convulsion [Recovered/Resolved]
  - Withdrawal syndrome [Recovering/Resolving]
  - Fall [Recovered/Resolved]
  - Joint dislocation [Recovered/Resolved]
